FAERS Safety Report 15957730 (Version 4)
Quarter: 2019Q2

REPORT INFORMATION
  Report Type: Spontaneous
  Country: US (occurrence: US)
  Receive Date: 20190213
  Receipt Date: 20190412
  Transmission Date: 20190711
  Serious: Yes (Hospitalization)
  Sender: FDA-Public Use
  Company Number: US-VERTEX PHARMACEUTICALS-2019-001300

PATIENT
  Age: 21 Year
  Sex: Male

DRUGS (24)
  1. MARINOL                            /00003301/ [Concomitant]
     Active Substance: ALLOPURINOL
  2. IBUPROFEN. [Concomitant]
     Active Substance: IBUPROFEN
  3. BUSPIRONE HCL [Concomitant]
     Active Substance: BUSPIRONE HYDROCHLORIDE
  4. HYPERSAL [Concomitant]
     Dosage: VIA NEBULISER
     Route: 055
  5. SYMDEKO [Suspect]
     Active Substance: IVACAFTOR\TEZACAFTOR
     Indication: CYSTIC FIBROSIS
     Dosage: 1 YELLOW TABLET IN MORNING AND 1 BLUE TABLET IN EVENING, APPROX. 12 HRS APART
     Route: 048
     Dates: start: 2018
  6. TOBI [Concomitant]
     Active Substance: TOBRAMYCIN
  7. FLONASE                            /00908302/ [Concomitant]
     Active Substance: MOMETASONE FUROATE
  8. CYCLOBENZAPRINE HCL [Concomitant]
     Active Substance: CYCLOBENZAPRINE HYDROCHLORIDE
  9. VITAMIN D2 [Concomitant]
     Active Substance: ERGOCALCIFEROL
  10. VITAMIN A                          /00056001/ [Concomitant]
     Active Substance: RETINOL
  11. SYMDEKO [Suspect]
     Active Substance: IVACAFTOR\TEZACAFTOR
     Dosage: 1 YELLOW TABLET IN MORNING
     Route: 048
     Dates: start: 20190214, end: 20190221
  12. URSODIOL. [Concomitant]
     Active Substance: URSODIOL
  13. EFFEXOR [Concomitant]
     Active Substance: VENLAFAXINE HYDROCHLORIDE
  14. NORCO [Concomitant]
     Active Substance: ACETAMINOPHEN\HYDROCODONE BITARTRATE
  15. NOVOLOG [Concomitant]
     Active Substance: INSULIN ASPART
  16. VITAMIN K [Concomitant]
     Active Substance: PHYTONADIONE
     Route: 060
  17. FOSAMAX [Concomitant]
     Active Substance: ALENDRONATE SODIUM
  18. ZENPEP [Concomitant]
     Active Substance: PANCRELIPASE AMYLASE\PANCRELIPASE LIPASE\PANCRELIPASE PROTEASE
  19. NEXIUM [Concomitant]
     Active Substance: ESOMEPRAZOLE MAGNESIUM
  20. CITRACAL-D [Concomitant]
     Active Substance: CALCIUM CITRATE\CHOLECALCIFEROL
  21. ZITHROMAX [Concomitant]
     Active Substance: AZITHROMYCIN DIHYDRATE
  22. DULERA [Concomitant]
     Active Substance: FORMOTEROL FUMARATE DIHYDRATE\MOMETASONE FUROATE
  23. ALBUTEROL SULFATE. [Concomitant]
     Active Substance: ALBUTEROL SULFATE
  24. IRON [Concomitant]
     Active Substance: IRON

REACTIONS (4)
  - Pneumonia staphylococcal [Recovered/Resolved]
  - Alanine aminotransferase increased [Recovered/Resolved]
  - Aspartate aminotransferase increased [Recovered/Resolved]
  - Blood alkaline phosphatase increased [Recovering/Resolving]

NARRATIVE: CASE EVENT DATE: 2019
